FAERS Safety Report 9078481 (Version 3)
Quarter: 2014Q3

REPORT INFORMATION
  Report Type: Spontaneous
  Country: US (occurrence: US)
  Receive Date: 20130215
  Receipt Date: 20140716
  Transmission Date: 20150326
  Serious: Yes (Hospitalization, Other)
  Sender: FDA-Public Use
  Company Number: US-009507513-1302USA006738

PATIENT
  Sex: Female
  Weight: 61.22 kg

DRUGS (2)
  1. NUVARING [Suspect]
     Active Substance: ETHINYL ESTRADIOL\ETONOGESTREL
     Indication: CONTRACEPTION
     Dosage: UNK
     Route: 067
     Dates: start: 20100601, end: 20101115
  2. NUVARING [Suspect]
     Active Substance: ETHINYL ESTRADIOL\ETONOGESTREL
     Dosage: UNK
     Route: 067
     Dates: start: 20101222, end: 201104

REACTIONS (7)
  - Deep vein thrombosis [Unknown]
  - Pulmonary embolism [Unknown]
  - Otitis media [Unknown]
  - Constipation [Unknown]
  - Maternal exposure before pregnancy [Unknown]
  - Pulmonary embolism [Unknown]
  - Coagulopathy [Unknown]

NARRATIVE: CASE EVENT DATE: 201011
